FAERS Safety Report 5131934-0 (Version None)
Quarter: 2006Q4

REPORT INFORMATION
  Report Type: 
  Country: None (occurrence: None)
  Receive Date: 20061016
  Receipt Date: 20061002
  Transmission Date: 20070319
  Serious: Yes (Other)
  Sender: FDA-Public Use
  Company Number: 2006103654

PATIENT
  Age: 18 Month
  Sex: Male
  Weight: 13.2904 kg

DRUGS (7)
  1. ZYRTEC [Suspect]
     Indication: RHINITIS ALLERGIC
     Dosage: 2.5 MG (2.5 MG, 1 IN 1 D), ORAL
     Route: 048
     Dates: start: 20060808
  2. ZYRTEC [Suspect]
     Indication: SEASONAL ALLERGY
     Dosage: 2.5 MG (2.5 MG, 1 IN 1 D), ORAL
     Route: 048
     Dates: start: 20060808
  3. AMOXICILLIN [Concomitant]
  4. SODIUM CHLORIDE 0.9% [Concomitant]
  5. HYDROXYZINE [Concomitant]
  6. SINGULAIR [Concomitant]
  7. ALBUTEROL [Concomitant]

REACTIONS (2)
  - FEAR [None]
  - SLEEP TERROR [None]
